FAERS Safety Report 9103466 (Version 6)
Quarter: 2013Q2

REPORT INFORMATION
  Report Type: Spontaneous
  Country: FR (occurrence: FR)
  Receive Date: 20130219
  Receipt Date: 20130530
  Transmission Date: 20140414
  Serious: Yes (Hospitalization, Other)
  Sender: FDA-Public Use
  Company Number: FR-CELGENEUS-056-21880-13021582

PATIENT
  Age: 82 Year
  Sex: Female
  Weight: 74 kg

DRUGS (11)
  1. REVLIMID [Suspect]
     Indication: PLASMA CELL MYELOMA
     Dosage: 25 MILLIGRAM
     Route: 048
     Dates: start: 20130130, end: 20130211
  2. MLN 9708/PLACEBO [Suspect]
     Indication: PLASMA CELL MYELOMA
     Dosage: 4 MILLIGRAM
     Route: 048
     Dates: start: 20130130, end: 20130206
  3. DEXAMETHASONE [Suspect]
     Indication: PLASMA CELL MYELOMA
     Dosage: 40 MILLIGRAM
     Route: 048
     Dates: start: 20130130, end: 20130206
  4. COOLMETEC [Suspect]
     Indication: HYPERTENSION
     Route: 048
  5. NEXIUM [Concomitant]
     Indication: GASTRITIS PROPHYLAXIS
     Dosage: 40 MILLIGRAM
     Route: 048
  6. HYDROCHLOROTHIAZID [Concomitant]
     Indication: DIURETIC THERAPY
     Route: 065
  7. CRESTOR [Concomitant]
     Indication: DYSLIPIDAEMIA
     Route: 048
  8. LYTOS [Concomitant]
     Indication: BONE PAIN
     Route: 048
     Dates: start: 20090303
  9. KARDEGIC [Concomitant]
     Indication: THROMBOSIS PROPHYLAXIS
     Route: 065
     Dates: start: 20090331
  10. LMWH [Concomitant]
     Indication: THROMBOSIS PROPHYLAXIS
     Route: 065
  11. EUPANTOL [Concomitant]
     Indication: PRODUCT USED FOR UNKNOWN INDICATION
     Route: 065

REACTIONS (2)
  - Hyponatraemia [Recovered/Resolved]
  - Femur fracture [Recovered/Resolved]
